FAERS Safety Report 8806095 (Version 2)
Quarter: 2012Q4

REPORT INFORMATION
  Report Type: 
  Country: CO (occurrence: CO)
  Receive Date: 20120925
  Receipt Date: 20120928
  Transmission Date: 20130627
  Serious: Yes (Death, Hospitalization, Other)
  Sender: FDA-Public Use
  Company Number: CO-009507513-1209COL009257

PATIENT
  Age: 65 Year
  Sex: Female

DRUGS (3)
  1. VICTRELIS [Suspect]
     Indication: HEPATITIS C
     Dosage: 2400 mg, UNK
     Route: 048
     Dates: start: 20120803
  2. PEG-INTRON [Suspect]
     Indication: HEPATITIS C
     Dosage: 120 mg, UNK
     Route: 058
     Dates: start: 20120803
  3. REBETOL [Concomitant]
     Indication: HEPATITIS C
     Dosage: 1000 mg, UNK
     Route: 048
     Dates: start: 20120803

REACTIONS (4)
  - Peritonitis [Fatal]
  - Abdominal distension [Unknown]
  - Jaundice [Unknown]
  - Encephalopathy [Unknown]
